FAERS Safety Report 11826601 (Version 2)
Quarter: 2016Q1

REPORT INFORMATION
  Report Type: Spontaneous
  Country: US (occurrence: US)
  Receive Date: 20151211
  Receipt Date: 20160115
  Transmission Date: 20160525
  Serious: No
  Sender: FDA-Public Use
  Company Number: US-GLAXOSMITHKLINE-US2015174688

PATIENT
  Age: 83 Year
  Sex: Female

DRUGS (12)
  1. ANORO ELLIPTA [Suspect]
     Active Substance: UMECLIDINIUM BROMIDE\VILANTEROL TRIFENATATE
     Indication: ASTHMA
     Dosage: 1 PUFF(S), QD
     Route: 055
     Dates: start: 20151228, end: 20151228
  2. PANTOPRAZOLE [Concomitant]
     Active Substance: PANTOPRAZOLE SODIUM
  3. SPIRONOLACTONE. [Concomitant]
     Active Substance: SPIRONOLACTONE
  4. PROZAC [Concomitant]
     Active Substance: FLUOXETINE HYDROCHLORIDE
  5. IPRATROPIUM BROMIDE AND ALBUTEROL NEBULISER SOLUTION [Concomitant]
  6. XOPENEX [Concomitant]
     Active Substance: LEVALBUTEROL HYDROCHLORIDE
  7. BREO ELLIPTA [Suspect]
     Active Substance: FLUTICASONE FUROATE\VILANTEROL TRIFENATATE
     Indication: ASTHMA
     Dosage: 1 PUFF(S), QD
     Route: 055
     Dates: start: 201510, end: 20151206
  8. SINGULAIR [Concomitant]
     Active Substance: MONTELUKAST SODIUM
  9. DESLORATADINE. [Concomitant]
     Active Substance: DESLORATADINE
  10. LEVOTHYROXINE. [Concomitant]
     Active Substance: LEVOTHYROXINE
  11. LANTUS [Concomitant]
     Active Substance: INSULIN GLARGINE
  12. FUROSEMIDE. [Concomitant]
     Active Substance: FUROSEMIDE

REACTIONS (8)
  - Hypothyroidism [Not Recovered/Not Resolved]
  - Palpitations [Recovered/Resolved]
  - Drug ineffective [Unknown]
  - Dysphonia [Recovering/Resolving]
  - Pain [Recovering/Resolving]
  - Dyspnoea [Recovered/Resolved]
  - Hypoglycaemia [Recovering/Resolving]
  - Hypertension [Recovering/Resolving]

NARRATIVE: CASE EVENT DATE: 2015
